FAERS Safety Report 5023551-8 (Version None)
Quarter: 2006Q2

REPORT INFORMATION
  Report Type: 
  Country: None (occurrence: None)
  Receive Date: 20060428
  Receipt Date: 20060301
  Transmission Date: 20061013
  Serious: No
  Sender: FDA-Public Use
  Company Number: CLOF-10200

PATIENT
  Sex: Male

DRUGS (1)
  1. CLOFARABINE [Suspect]
     Indication: ACUTE MYELOID LEUKAEMIA
     Dosage: 30 MG/M2 IV
     Route: 042
     Dates: start: 20060228

REACTIONS (4)
  - BLOOD CREATININE INCREASED [None]
  - CHILLS [None]
  - TACHYCARDIA [None]
  - WHEEZING [None]
